FAERS Safety Report 5593471-9 (Version None)
Quarter: 2008Q1

REPORT INFORMATION
  Report Type: 
  Country: None (occurrence: None)
  Receive Date: 20080116
  Receipt Date: 20080110
  Transmission Date: 20080703
  Serious: Yes (Other)
  Sender: FDA-Public Use
  Company Number: DE-TEVA-166204ISR

PATIENT

DRUGS (3)
  1. FOLINIC ACID [Suspect]
  2. FLUOROURACIL [Suspect]
  3. ONDANSETRON [Concomitant]

REACTIONS (1)
  - ARRHYTHMIA [None]
